FAERS Safety Report 15708991 (Version 1)
Quarter: 2018Q4

REPORT INFORMATION
  Report Type: Report from Study
  Country: US (occurrence: US)
  Receive Date: 20181211
  Receipt Date: 20181211
  Transmission Date: 20190205
  Serious: Yes (Hospitalization, Other)
  Sender: FDA-Public Use
  Company Number: US-UCBSA-2018051226

PATIENT
  Age: 39 Year
  Sex: Male
  Weight: 63.5 kg

DRUGS (2)
  1. LACOSAMIDE. [Suspect]
     Active Substance: LACOSAMIDE
     Indication: SEIZURE
     Dosage: 50 MG, 2X/DAY (BID)
     Route: 048
     Dates: start: 20181031, end: 2018
  2. DILANTIN [Concomitant]
     Active Substance: PHENYTOIN
     Indication: PRODUCT USED FOR UNKNOWN INDICATION
     Dosage: UNK

REACTIONS (10)
  - Homicidal ideation [Unknown]
  - Bipolar disorder [Not Recovered/Not Resolved]
  - Depression [Unknown]
  - Post-traumatic stress disorder [Not Recovered/Not Resolved]
  - Suicidal ideation [Unknown]
  - Drug hypersensitivity [Unknown]
  - Depressed mood [Unknown]
  - Seizure [Recovered/Resolved]
  - Fear [Unknown]
  - Mood swings [Unknown]

NARRATIVE: CASE EVENT DATE: 2018
